FAERS Safety Report 25713973 (Version 3)
Quarter: 2025Q3

REPORT INFORMATION
  Report Type: Spontaneous
  Country: JP (occurrence: JP)
  Receive Date: 20250822
  Receipt Date: 20250930
  Transmission Date: 20251021
  Serious: Yes (Hospitalization, Other)
  Sender: GLAXOSMITHKLINE
  Company Number: JP-GSKNCCC-Case-02532154_AE-102180

PATIENT
  Age: 52 Year
  Sex: Female
  Weight: 48.2 kg

DRUGS (3)
  1. FLUTICASONE FUROATE\VILANTEROL TRIFENATATE [Suspect]
     Active Substance: FLUTICASONE FUROATE\VILANTEROL TRIFENATATE
     Indication: Asthma
     Dates: start: 20191016, end: 20240514
  2. FLUTICASONE FUROATE\VILANTEROL TRIFENATATE [Suspect]
     Active Substance: FLUTICASONE FUROATE\VILANTEROL TRIFENATATE
     Dosage: 200 ?G, 1D, 1 INHALATION PER DOSE
     Dates: start: 20240515
  3. SERETIDE [Suspect]
     Active Substance: FLUTICASONE PROPIONATE\SALMETEROL XINAFOATE
     Indication: Asthma

REACTIONS (12)
  - Toxic skin eruption [Unknown]
  - Pyrexia [Recovering/Resolving]
  - Rash [Recovering/Resolving]
  - Inflammation [Unknown]
  - Liver disorder [Unknown]
  - Purpura [Unknown]
  - Rash erythematous [Unknown]
  - Drug eruption [Unknown]
  - Asthma [Unknown]
  - Back pain [Unknown]
  - Myalgia [Unknown]
  - Infection [Unknown]

NARRATIVE: CASE EVENT DATE: 20140901
